FAERS Safety Report 10287116 (Version 2)
Quarter: 2014Q3

REPORT INFORMATION
  Report Type: Spontaneous
  Country: DE (occurrence: DE)
  Receive Date: 20140709
  Receipt Date: 20140808
  Transmission Date: 20150326
  Serious: Yes (Hospitalization)
  Sender: FDA-Public Use
  Company Number: DE-SA-2014SA085716

PATIENT
  Age: 45 Year
  Sex: Female
  Weight: 55 kg

DRUGS (2)
  1. AUBAGIO [Suspect]
     Active Substance: TERIFLUNOMIDE
     Indication: MULTIPLE SCLEROSIS
     Route: 048
  2. BETA BLOCKING AGENTS [Concomitant]
     Active Substance: UNSPECIFIED INGREDIENT
     Dates: end: 201406

REACTIONS (4)
  - Dyspnoea [Unknown]
  - Pneumothorax [Recovered/Resolved]
  - Aortic valve incompetence [Recovered/Resolved]
  - Emphysema [Recovered/Resolved]

NARRATIVE: CASE EVENT DATE: 20140513
